FAERS Safety Report 7610036-5 (Version None)
Quarter: 2011Q3

REPORT INFORMATION
  Report Type: 
  Country: None (occurrence: None)
  Receive Date: 20110714
  Receipt Date: 20110712
  Transmission Date: 20111222
  Serious: Yes (Life-Threatening, Hospitalization)
  Sender: FDA-Public Use
  Company Number: BR-BRISTOL-MYERS SQUIBB COMPANY-15897440

PATIENT
  Age: 45 Year
  Sex: Female

DRUGS (3)
  1. MYCOPHENOLATE MOFETIL [Concomitant]
     Indication: RENAL TRANSPLANT
     Dates: start: 20061220
  2. BELATACEPT [Suspect]
     Indication: RENAL TRANSPLANT
     Dosage: INTERRUPTED:02JUN11
     Route: 042
     Dates: start: 20061221
  3. PREDNISONE [Concomitant]
     Indication: RENAL TRANSPLANT
     Dates: start: 20061222

REACTIONS (2)
  - BRAIN NEOPLASM [None]
  - CENTRAL NERVOUS SYSTEM LESION [None]
